FAERS Safety Report 4974111-6 (Version None)
Quarter: 2006Q2

REPORT INFORMATION
  Report Type: 
  Country: None (occurrence: None)
  Receive Date: 20060417
  Receipt Date: 20051215
  Transmission Date: 20061013
  Serious: Yes (Hospitalization)
  Sender: FDA-Public Use
  Company Number: US-MERCK-0512USA02550

PATIENT
  Age: 67 Year
  Sex: Female
  Weight: 68 kg

DRUGS (14)
  1. VIOXX [Suspect]
     Indication: ARTHRITIS
     Route: 048
     Dates: start: 20010110, end: 20040930
  2. VIOXX [Suspect]
     Indication: RHEUMATOID ARTHRITIS
     Route: 048
     Dates: start: 20010110, end: 20040930
  3. ASPIRIN [Concomitant]
     Route: 048
     Dates: start: 19990101, end: 20051119
  4. TYLENOL (CAPLET) [Concomitant]
     Route: 065
  5. ULTRAM [Concomitant]
     Route: 048
     Dates: start: 20021101
  6. VALIUM [Concomitant]
     Route: 065
     Dates: start: 20021101
  7. DIOVAN [Concomitant]
     Indication: HYPERTENSION
     Route: 048
     Dates: start: 20021101
  8. TIMOPTIC [Concomitant]
     Route: 048
     Dates: start: 19980101, end: 20041011
  9. PRAVACHOL [Concomitant]
     Route: 065
     Dates: start: 20000101, end: 20040901
  10. LIPITOR [Concomitant]
     Route: 048
     Dates: start: 20021101, end: 20030101
  11. ZOCOR [Concomitant]
     Route: 048
     Dates: start: 20040901, end: 20051118
  12. [THERAPY UNSPECIFIED] [Concomitant]
     Route: 065
     Dates: start: 19990101
  13. GLUCOVANCE [Concomitant]
     Indication: DIABETES MELLITUS
     Route: 048
  14. ELAVIL [Concomitant]
     Route: 048

REACTIONS (13)
  - ARTERIOSCLEROSIS CORONARY ARTERY [None]
  - CAROTID ARTERY OCCLUSION [None]
  - CATARACT [None]
  - DIZZINESS [None]
  - DRUG HYPERSENSITIVITY [None]
  - LACUNAR INFARCTION [None]
  - LIMB INJURY [None]
  - LOSS OF CONSCIOUSNESS [None]
  - MITRAL VALVE INCOMPETENCE [None]
  - PNEUMONIA [None]
  - SPINAL X-RAY ABNORMAL [None]
  - SYNCOPE [None]
  - VOMITING [None]
